FAERS Safety Report 19730438 (Version 3)
Quarter: 2021Q3

REPORT INFORMATION
  Report Type: Spontaneous
  Country: GB (occurrence: GB)
  Receive Date: 20210820
  Receipt Date: 20210910
  Transmission Date: 20211014
  Serious: Yes (Other)
  Sender: FDA-Public Use
  Company Number: NVSC2021GB182331

PATIENT
  Age: 73 Year
  Sex: Female
  Weight: 50.2 kg

DRUGS (19)
  1. SODIUM CHLORIDE. [Suspect]
     Active Substance: SODIUM CHLORIDE
     Dosage: UNK (0.9 %; SOLUTION FOR INFUSION DAY 1 OF CYCLE 2, VMP REGIMEN, COMPOUNDED WITH BORTEZOMIB)
     Route: 065
     Dates: start: 20171110, end: 20171110
  2. ALLOPURINOL. [Suspect]
     Active Substance: ALLOPURINOL
     Indication: PRODUCT USED FOR UNKNOWN INDICATION
     Dosage: 30 MG, QD
     Route: 065
     Dates: start: 20171104
  3. SODIUM CHLORIDE. [Suspect]
     Active Substance: SODIUM CHLORIDE
     Dosage: UNK (0.9 %; SOLUTION FOR INFUSION DAY 1 OF CYCLE 2, VMP REGIMEN, COMPOUNDED WITH BORTEZOMIB)
     Route: 065
     Dates: start: 20171106, end: 20171106
  4. VELCADE [Suspect]
     Active Substance: BORTEZOMIB
     Dosage: 1.3 MG/M2 (DOSAGE FORM: LYOPHILIZED POWDER, DAY 8 OF CYCLE 2, DOSE: 2 MG, COMPOUNDED WITH SODIUM CHL
     Route: 058
     Dates: start: 20171110, end: 20171110
  5. DURAGESIC [Suspect]
     Active Substance: FENTANYL
     Indication: PRODUCT USED FOR UNKNOWN INDICATION
     Dosage: 12 MG, QH
     Route: 062
     Dates: start: 20171108
  6. SODIUM CHLORIDE. [Suspect]
     Active Substance: SODIUM CHLORIDE
     Indication: MEDICATION DILUTION
     Dosage: UNK (0.9 %; SOLUTION FOR INFUSION DAY 1 OF CYCLE 2, VMP REGIMEN, COMPOUNDED WITH BORTEZOMIB)
     Route: 065
     Dates: start: 20171103, end: 20171103
  7. VELCADE [Suspect]
     Active Substance: BORTEZOMIB
     Indication: PLASMA CELL LEUKAEMIA
     Dosage: 1.3 MG/M2 (DOSAGE FORM: LYOPHILIZED POWDER, ON DAYS 1, 4, 8, 11, 22, 25, 29, 32, DAY 1 OF CYCLE 2; D
     Route: 058
     Dates: start: 20171103, end: 20171103
  8. OMEPRAZOLE. [Concomitant]
     Active Substance: OMEPRAZOLE
     Indication: PRODUCT USED FOR UNKNOWN INDICATION
     Dosage: 20 MG, QD (EVERY MORNING)
     Route: 065
  9. RAMIPRIL. [Concomitant]
     Active Substance: RAMIPRIL
     Indication: PRODUCT USED FOR UNKNOWN INDICATION
     Dosage: 10 MG, QD (EVERY MORNING)
     Route: 065
  10. DEXAMETHASONE. [Suspect]
     Active Substance: DEXAMETHASONE
     Dosage: 20 MG, QD
     Route: 065
  11. VELCADE [Suspect]
     Active Substance: BORTEZOMIB
     Dosage: 1.3 MG/M2 (DOSAGE FORM: LYOPHILIZED POWDER, DAY 4 OF CYCLE 2, DOSE AS 2 MG, COMPOUNDED WITH SODIUM C
     Route: 058
     Dates: start: 20171106, end: 20171106
  12. ALLOPURINOL. [Suspect]
     Active Substance: ALLOPURINOL
     Dosage: 300 MG, QD
     Route: 065
     Dates: start: 20171120
  13. PREDNISONE. [Suspect]
     Active Substance: PREDNISONE
     Indication: PLASMA CELL LEUKAEMIA
     Dosage: 70 MG, QD
     Route: 065
     Dates: start: 20171103, end: 20171106
  14. PREDNISONE. [Suspect]
     Active Substance: PREDNISONE
     Dosage: 1 DF, CYCLICAL
     Route: 065
  15. BENDROFLUMETHIAZIDE [Concomitant]
     Active Substance: BENDROFLUMETHIAZIDE
     Indication: PRODUCT USED FOR UNKNOWN INDICATION
     Dosage: 2.5 MG, QD (EVERY MORNING)
     Route: 065
  16. DEXAMETHASONE. [Suspect]
     Active Substance: DEXAMETHASONE
     Indication: PRODUCT USED FOR UNKNOWN INDICATION
     Dosage: 20 MG, QD
     Route: 065
     Dates: start: 20171102, end: 20171106
  17. METOCLOPRAMIDE. [Concomitant]
     Active Substance: METOCLOPRAMIDE
     Indication: PRODUCT USED FOR UNKNOWN INDICATION
     Dosage: 10 MG, PRN (QDS PRN)
     Route: 065
  18. MELPHALAN. [Suspect]
     Active Substance: MELPHALAN
     Indication: PLASMA CELL LEUKAEMIA
     Dosage: 14 MG, QD (VMP REGIMEN, DAY 1 TO 4, CYCLE 2)
     Route: 065
     Dates: start: 20171103, end: 20171106
  19. SERTRALINE [Concomitant]
     Active Substance: SERTRALINE HYDROCHLORIDE
     Indication: PRODUCT USED FOR UNKNOWN INDICATION
     Dosage: 50 MG, QD (EVERY MORNING)
     Route: 065

REACTIONS (10)
  - Confusional state [Not Recovered/Not Resolved]
  - Disorientation [Recovered/Resolved]
  - Abnormal behaviour [Not Recovered/Not Resolved]
  - Product use in unapproved indication [Unknown]
  - Off label use [Unknown]
  - Emotional distress [Not Recovered/Not Resolved]
  - Disturbance in social behaviour [Recovered/Resolved]
  - Paranoia [Not Recovered/Not Resolved]
  - Hallucination [Recovered/Resolved]
  - Agitation [Not Recovered/Not Resolved]

NARRATIVE: CASE EVENT DATE: 20171107
